FAERS Safety Report 9278948 (Version 5)
Quarter: 2013Q4

REPORT INFORMATION
  Report Type: Spontaneous
  Country: US (occurrence: US)
  Receive Date: 20130508
  Receipt Date: 20131203
  Transmission Date: 20140711
  Serious: Yes (Hospitalization, Other)
  Sender: FDA-Public Use
  Company Number: US-GILEAD-2013-0074735

PATIENT
  Sex: Female

DRUGS (1)
  1. LETAIRIS [Suspect]
     Indication: PULMONARY ARTERIAL HYPERTENSION
     Dosage: 5 MG, QD
     Route: 048
     Dates: start: 20130225

REACTIONS (7)
  - Renal failure acute [Unknown]
  - Blood potassium abnormal [Unknown]
  - Blood pressure increased [Unknown]
  - Renal disorder [Unknown]
  - Iron deficiency [Unknown]
  - Swelling [Unknown]
  - Anaemia [Unknown]
